FAERS Safety Report 12185997 (Version 1)
Quarter: 2016Q1

REPORT INFORMATION
  Report Type: Spontaneous
  Country: US (occurrence: US)
  Receive Date: 20160317
  Receipt Date: 20160317
  Transmission Date: 20160526
  Serious: Yes (Hospitalization)
  Sender: FDA-Public Use
  Company Number: US-AMGEN-USASP2016031885

PATIENT
  Age: 61 Year
  Sex: Female

DRUGS (2)
  1. ASPIRIN                            /00002701/ [Concomitant]
     Active Substance: ASPIRIN
     Dosage: UNK
     Route: 065
  2. PROLIA [Suspect]
     Active Substance: DENOSUMAB
     Indication: OSTEOPOROSIS
     Dosage: UNK
     Route: 065
     Dates: start: 20150726

REACTIONS (10)
  - Rash papular [Unknown]
  - Colonoscopy [Unknown]
  - Periarthritis [Unknown]
  - Pruritus [Recovered/Resolved]
  - Chest pain [Unknown]
  - Hysterectomy [Unknown]
  - Muscle spasms [Unknown]
  - Pain in extremity [Unknown]
  - Joint stiffness [Unknown]
  - Musculoskeletal stiffness [Unknown]
